FAERS Safety Report 4658598-4 (Version None)
Quarter: 2005Q2

REPORT INFORMATION
  Report Type: 
  Country: None (occurrence: None)
  Receive Date: 20050511
  Receipt Date: 20050311
  Transmission Date: 20051028
  Serious: Yes (Hospitalization, Other)
  Sender: FDA-Public Use
  Company Number: FR-BRISTOL-MYERS SQUIBB COMPANY-12902441

PATIENT
  Age: 53 Year
  Sex: Male

DRUGS (7)
  1. ENDOXAN [Suspect]
     Indication: B-CELL LYMPHOMA
     Dosage: CYC. 2: 21 TO 25JAN-05 CYC. 3: 04 TO 08FEB05
     Route: 042
     Dates: start: 20050105, end: 20050105
  2. BLEOMYCIN HCL [Suspect]
     Indication: B-CELL LYMPHOMA
     Dosage: CYC. 2: 21 TO 25JAN-05 CYC. 3: 04 TO 08FEB05 -GIVEN DAYS 1-5
     Route: 042
     Dates: start: 20050105, end: 20050110
  3. ELDISINE [Suspect]
     Indication: B-CELL LYMPHOMA
     Dosage: CYC. 2: 21 TO 25JAN-05 CYC. 3: 04 TO 08FEB05
     Route: 042
     Dates: start: 20050105, end: 20050105
  4. ADRIAMYCIN PFS [Suspect]
     Indication: B-CELL LYMPHOMA
     Dosage: CYC. 2: 21 TO 25JAN-05 CYC. 3: 04 TO 08FEB05
     Route: 042
     Dates: start: 20050105, end: 20050105
  5. METHOTREXATE-TEVA [Suspect]
     Indication: B-CELL LYMPHOMA
     Dosage: CYC. 2: 21 TO 25JAN-05 CYC. 3: 04 TO 08FEB05
     Route: 037
     Dates: start: 20050105, end: 20050105
  6. MABTHERA [Suspect]
     Indication: B-CELL LYMPHOMA
     Dosage: CYC. 2: 21 TO 25JAN-05 CYC. 3: 04 TO 08FEB05
     Route: 030
     Dates: start: 20050105, end: 20050105
  7. PREDNISONE [Concomitant]
     Dates: start: 20050105

REACTIONS (6)
  - CHILLS [None]
  - COUGH [None]
  - DYSPNOEA EXERTIONAL [None]
  - HYPOXIA [None]
  - PNEUMOCYSTIS JIROVECI INFECTION [None]
  - PYREXIA [None]
